FAERS Safety Report 6860870-4 (Version None)
Quarter: 2010Q3

REPORT INFORMATION
  Report Type: 
  Country: None (occurrence: None)
  Receive Date: 20100720
  Receipt Date: 20100716
  Transmission Date: 20110219
  Serious: Yes (Other)
  Sender: FDA-Public Use
  Company Number: DE-BRISTOL-MYERS SQUIBB COMPANY-15195837

PATIENT
  Age: 22 Year
  Sex: Male
  Weight: 89 kg

DRUGS (2)
  1. ARIPIPRAZOLE [Suspect]
     Indication: SCHIZOPHRENIA
     Route: 048
     Dates: start: 20100329, end: 20100706
  2. MIRTAZAPINE [Concomitant]
     Indication: DEPRESSION
     Dates: start: 20100329, end: 20100706

REACTIONS (2)
  - CRYING [None]
  - ELECTROENCEPHALOGRAM ABNORMAL [None]
